FAERS Safety Report 8292201-X (Version None)
Quarter: 2012Q2

REPORT INFORMATION
  Report Type: 
  Country: None (occurrence: None)
  Receive Date: 20120417
  Receipt Date: 20120416
  Transmission Date: 20120825
  Serious: No
  Sender: FDA-Public Use
  Company Number: US-B.I. PHARMACEUTICALS,INC./RIDGEFIELD-2012-BP-07228BP

PATIENT
  Sex: Male

DRUGS (5)
  1. TRADJENTA [Suspect]
     Indication: TYPE 2 DIABETES MELLITUS
     Dosage: 5 MG
     Route: 048
     Dates: start: 20120104
  2. ASPIRIN [Concomitant]
     Indication: ANEURYSM
     Dosage: 325 MG
     Route: 048
  3. ATENOLOL [Concomitant]
     Indication: CARDIAC DISORDER
     Dosage: 25 MG
     Route: 048
  4. COUMADIN [Concomitant]
     Indication: ANEURYSM
     Dosage: 5 MG
     Route: 048
  5. ATENOLOL [Concomitant]
     Indication: HEART RATE IRREGULAR

REACTIONS (5)
  - COAGULATION TIME SHORTENED [None]
  - THERAPEUTIC RESPONSE DECREASED [None]
  - FAECES DISCOLOURED [None]
  - WEIGHT DECREASED [None]
  - CONSTIPATION [None]
